FAERS Safety Report 4413468-1 (Version None)
Quarter: 2004Q3

REPORT INFORMATION
  Report Type: 
  Country: None (occurrence: None)
  Receive Date: 20040727
  Receipt Date: 20040720
  Transmission Date: 20050211
  Serious: Yes (Death)
  Sender: FDA-Public Use
  Company Number: USA-2003-0011313

PATIENT
  Age: 50 Year
  Sex: Male
  Weight: 147.8 kg

DRUGS (9)
  1. MORPHINE SULFATE [Suspect]
  2. DOXEPIN (DOXEPIN) [Suspect]
  3. OXAZEPAM [Suspect]
  4. VALPROIC ACID [Suspect]
  5. DIAZEPAM [Suspect]
  6. TEMAZEPAM [Concomitant]
  7. CODEINE (CODEINE) [Suspect]
  8. CAFFEINE (CAFFEINE) [Suspect]
  9. NICOTINE [Suspect]

REACTIONS (7)
  - ACCIDENTAL OVERDOSE [None]
  - ATHEROSCLEROSIS [None]
  - CARDIOMEGALY [None]
  - COMA [None]
  - CORONARY ARTERY ATHEROSCLEROSIS [None]
  - DRUG TOXICITY [None]
  - MYOCARDIAL FIBROSIS [None]
